FAERS Safety Report 14339697 (Version 2)
Quarter: 2017Q4

REPORT INFORMATION
  Report Type: Report from Study
  Country: MX (occurrence: MX)
  Receive Date: 20171230
  Receipt Date: 20171230
  Transmission Date: 20180321
  Serious: Yes (Death, Hospitalization)
  Sender: FDA-Public Use
  Company Number: PHHY2017MX121716

PATIENT
  Sex: Male

DRUGS (6)
  1. VITAMIN B COMPLEX [Concomitant]
     Active Substance: CYANOCOBALAMIN\DEXPANTHENOL\NIACINAMIDE\PYRIDOXINE HYDROCHLORIDE\RIBOFLAVIN 5^-PHOSPHATE SODIUM\THIAMINE HYDROCHLORIDE\VITAMIN B COMPLEX
     Indication: CARDIAC DISORDER
     Dosage: UNK
     Route: 048
     Dates: end: 201711
  2. FUROSEMIDE. [Concomitant]
     Active Substance: FUROSEMIDE
     Indication: CARDIAC DISORDER
     Dosage: 1 DF, QD
     Route: 048
     Dates: end: 201711
  3. ACENOCOUMAROL [Suspect]
     Active Substance: ACENOCOUMAROL
     Indication: PRODUCT USED FOR UNKNOWN INDICATION
     Route: 065
  4. SPIRONOLACTONE. [Concomitant]
     Active Substance: SPIRONOLACTONE
     Indication: CARDIAC DISORDER
     Dosage: UNK
     Route: 065
     Dates: end: 201711
  5. ENTRESTO [Suspect]
     Active Substance: SACUBITRIL\VALSARTAN
     Indication: CARDIAC DISORDER
     Dosage: 0.5 DF (100MG), QD
     Route: 065
     Dates: start: 201708
  6. METOPROLOL. [Suspect]
     Active Substance: METOPROLOL
     Indication: CARDIAC DISORDER
     Dosage: 0.5 DF, QD
     Route: 065
     Dates: start: 201711

REACTIONS (10)
  - Heart rate decreased [Fatal]
  - Wrong technique in product usage process [Recovered/Resolved]
  - Agitation [Unknown]
  - Infarction [Unknown]
  - Dyspnoea [Fatal]
  - Cardio-respiratory arrest [Fatal]
  - Hepatic cirrhosis [Fatal]
  - Fluid retention [Unknown]
  - Product use in unapproved indication [Recovered/Resolved]
  - Drug prescribing error [Not Recovered/Not Resolved]
